FAERS Safety Report 4510751-6 (Version None)
Quarter: 2004Q4

REPORT INFORMATION
  Report Type: 
  Country: None (occurrence: None)
  Receive Date: 20041025
  Receipt Date: 20030827
  Transmission Date: 20050328
  Serious: Yes (Other)
  Sender: FDA-Public Use
  Company Number: NSADSS2002030940

PATIENT
  Age: 70 Year
  Sex: Male
  Weight: 82.1011 kg

DRUGS (2)
  1. REMICADE [Suspect]
     Indication: PSORIATIC ARTHROPATHY
     Dosage: 7.5 MG/KG 1 IN 1 TOTAL, INTRAVENOUS DRIP
     Route: 041
     Dates: start: 20020508
  2. REMICADE [Suspect]
     Indication: PSORIATIC ARTHROPATHY
     Dosage: 7.5 MG/KG 1 IN 1 TOTAL, INTRAVENOUS DRIP
     Route: 041
     Dates: start: 20030506

REACTIONS (2)
  - HEPATITIS C [None]
  - PSORIATIC ARTHROPATHY [None]
